FAERS Safety Report 24793910 (Version 1)
Quarter: 2024Q4

REPORT INFORMATION
  Report Type: Report from Study
  Country: TW (occurrence: TW)
  Receive Date: 20241231
  Receipt Date: 20241231
  Transmission Date: 20250115
  Serious: Yes (Other)
  Sender: ALEXION PHARMACEUTICALS
  Company Number: TW-AstraZeneca-CH-00774902A

PATIENT

DRUGS (4)
  1. DURVALUMAB [Suspect]
     Active Substance: DURVALUMAB
     Indication: Bile duct cancer
     Dosage: ,FREQUENCY:EVERY 3 WEEKS
  2. DURVALUMAB [Suspect]
     Active Substance: DURVALUMAB
     Dosage: ,FREQUENCY:EVERY 3 WEEKS
     Route: 041
  3. DURVALUMAB [Suspect]
     Active Substance: DURVALUMAB
     Dosage: ,FREQUENCY:EVERY 3 WEEKS
  4. DURVALUMAB [Suspect]
     Active Substance: DURVALUMAB
     Dosage: ,FREQUENCY:EVERY 3 WEEKS
     Route: 041

REACTIONS (2)
  - Delirium [Not Recovered/Not Resolved]
  - Dyspepsia [Not Recovered/Not Resolved]
